FAERS Safety Report 21414972 (Version 3)
Quarter: 2025Q3

REPORT INFORMATION
  Report Type: Spontaneous
  Country: US (occurrence: US)
  Receive Date: 20221006
  Receipt Date: 20250816
  Transmission Date: 20251021
  Serious: Yes (Hospitalization, Other)
  Sender: AUROBINDO
  Company Number: US-MLMSERVICE-20220919-3804386-1

PATIENT
  Age: 73 Year
  Sex: Female

DRUGS (1)
  1. RISPERIDONE [Suspect]
     Active Substance: RISPERIDONE
     Indication: Schizophrenia
     Route: 065

REACTIONS (4)
  - Pneumonia [Recovered/Resolved]
  - Hypothermia [Recovered/Resolved]
  - Thrombocytopenia [Recovered/Resolved]
  - Sepsis [Recovered/Resolved]
